FAERS Safety Report 7656559-4 (Version None)
Quarter: 2011Q3

REPORT INFORMATION
  Report Type: 
  Country: None (occurrence: None)
  Receive Date: 20110804
  Receipt Date: 20110219
  Transmission Date: 20111222
  Serious: No
  Sender: FDA-Public Use
  Company Number: US-BAUSCH-2011BL000849

PATIENT
  Age: 51 Year
  Sex: Male
  Weight: 74 kg

DRUGS (2)
  1. OPCON-A [Suspect]
     Indication: VISION BLURRED
     Route: 047
     Dates: start: 20110118, end: 20110207
  2. OPCON-A [Suspect]
     Indication: EYE ALLERGY
     Route: 047
     Dates: start: 20110118, end: 20110207

REACTIONS (4)
  - DRUG INEFFECTIVE [None]
  - HYPERSENSITIVITY [None]
  - EYE IRRITATION [None]
  - OCULAR HYPERAEMIA [None]
